FAERS Safety Report 7869981 (Version 5)
Quarter: 2013Q1

REPORT INFORMATION
  Report Type: Spontaneous
  Country: US (occurrence: None)
  Receive Date: 20110303
  Receipt Date: 20130213
  Transmission Date: 20140127
  Serious: Yes (Hospitalization, Other)
  Sender: FDA-Public Use
  Company Number: JPI-P-013962

PATIENT
  Age: 60 Year
  Sex: Female
  Weight: 56.7 kg

DRUGS (8)
  1. XYREM [Suspect]
     Indication: CATAPLEXY
     Route: 048
     Dates: start: 20070215, end: 20070308
  2. RADIATION THERAPY [Suspect]
     Indication: BREAST CANCER STAGE III
     Dates: end: 200812
  3. EXEMESTANE [Suspect]
     Indication: BREAST CANCER STAGE III
     Dates: end: 200809
  4. UNSPECIFIED INGREDIENT [Suspect]
     Indication: BREAST CANCER STAGE III
     Dates: end: 200809
  5. MULTIVITAMINS [Concomitant]
  6. LEVOTHYROXINE SODIUM [Concomitant]
  7. MAGNESIUM [Concomitant]
  8. METRONIDAZOLE [Concomitant]

REACTIONS (13)
  - Breast cancer stage III [None]
  - Ovarian cyst [None]
  - Uterine leiomyoma [None]
  - Osteopenia [None]
  - Gastrooesophageal reflux disease [None]
  - Eyelid oedema [None]
  - Oedema peripheral [None]
  - Confusional state [None]
  - Diarrhoea [None]
  - Dysphonia [None]
  - Fatigue [None]
  - Tooth disorder [None]
  - Tooth infection [None]
